FAERS Safety Report 4795015-8 (Version None)
Quarter: 2005Q4

REPORT INFORMATION
  Report Type: 
  Country: None (occurrence: None)
  Receive Date: 20051006
  Receipt Date: 20050927
  Transmission Date: 20060501
  Serious: Yes (Other)
  Sender: FDA-Public Use
  Company Number: 2005-04-1692

PATIENT
  Age: 49 Year
  Sex: Female
  Weight: 52 kg

DRUGS (3)
  1. INTRON A [Suspect]
     Indication: HEPATITIS B
     Dosage: 6 MIU*3X/WK INTRAMUSCULAR; SEE IMAGE
     Route: 030
     Dates: start: 20030610, end: 20050509
  2. INTRON A [Suspect]
     Indication: HEPATITIS B
     Dosage: 6 MIU*3X/WK INTRAMUSCULAR; SEE IMAGE
     Route: 030
     Dates: start: 20030616, end: 20050509
  3. ZEFFIX (LAMIVUDINE) TABLETS [Concomitant]

REACTIONS (8)
  - BUTTOCK PAIN [None]
  - INJECTION SITE ERYTHEMA [None]
  - INJECTION SITE INDURATION [None]
  - INJECTION SITE PAIN [None]
  - INJECTION SITE REACTION [None]
  - INJECTION SITE ULCER [None]
  - SKIN EXFOLIATION [None]
  - SKIN NECROSIS [None]
